FAERS Safety Report 18700743 (Version 1)
Quarter: 2021Q1

REPORT INFORMATION
  Report Type: Spontaneous
  Country: US (occurrence: US)
  Receive Date: 20210105
  Receipt Date: 20210105
  Transmission Date: 20210419
  Serious: No
  Sender: FDA-Public Use
  Company Number: US-ALLERGAN-2011950US

PATIENT
  Age: 6 Decade
  Sex: Female

DRUGS (5)
  1. PRED FORTE [Suspect]
     Active Substance: PREDNISOLONE ACETATE
     Indication: HERPES ZOSTER
  2. VITAMINS NOS [Concomitant]
     Active Substance: VITAMINS
  3. PRED FORTE [Suspect]
     Active Substance: PREDNISOLONE ACETATE
     Indication: ARTHRITIS
     Dosage: 1 GTT, BID
     Route: 047
     Dates: start: 201912
  4. ASPIRIN. [Concomitant]
     Active Substance: ASPIRIN
  5. PRED FORTE [Suspect]
     Active Substance: PREDNISOLONE ACETATE
     Indication: UVEITIS

REACTIONS (3)
  - Eye irritation [Not Recovered/Not Resolved]
  - Off label use [Unknown]
  - Ocular discomfort [Not Recovered/Not Resolved]

NARRATIVE: CASE EVENT DATE: 2020
